FAERS Safety Report 4543202-6 (Version None)
Quarter: 2004Q4

REPORT INFORMATION
  Report Type: 
  Country: None (occurrence: None)
  Receive Date: 20041229
  Receipt Date: 20041216
  Transmission Date: 20050328
  Serious: Yes (Disabling)
  Sender: FDA-Public Use
  Company Number: 2004115845

PATIENT
  Age: 10 Year
  Sex: Male
  Weight: 34.5 kg

DRUGS (3)
  1. SERTRALINE (SERTRALINE) [Suspect]
     Indication: OBSESSIVE-COMPULSIVE DISORDER
     Dosage: 50 MG, ORAL
     Route: 048
     Dates: start: 20041007
  2. ANTIHISTAMINES (ANTIHISTAMINES) [Concomitant]
  3. MULTIVITAMINS (ASCORBIC ACID, ERGOCALCIFEROL, FOLIC ACID, NICOTINAMIDE [Concomitant]

REACTIONS (1)
  - ENURESIS [None]
